FAERS Safety Report 19783234 (Version 1)
Quarter: 2021Q3

REPORT INFORMATION
  Report Type: Spontaneous
  Country: US (occurrence: US)
  Receive Date: 20210903
  Receipt Date: 20210903
  Transmission Date: 20211014
  Serious: No
  Sender: FDA-Public Use
  Company Number: US-ALLERGAN-2037028US

PATIENT
  Age: 17 Year
  Sex: Male

DRUGS (3)
  1. CLEOCIN T [Concomitant]
     Active Substance: CLINDAMYCIN PHOSPHATE
     Indication: ACNE
     Route: 061
  2. VITAMIN D NOS [Concomitant]
     Active Substance: VITAMIN D NOS
  3. ANDRODERM [Suspect]
     Active Substance: TESTOSTERONE
     Indication: ANDROGEN DEFICIENCY
     Dosage: 1 DF, QD
     Route: 062

REACTIONS (2)
  - Off label use [Unknown]
  - Device adhesion issue [Unknown]
